FAERS Safety Report 8560827-1 (Version None)
Quarter: 2012Q3

REPORT INFORMATION
  Report Type: 
  Country: None (occurrence: None)
  Receive Date: 20120802
  Receipt Date: 20120725
  Transmission Date: 20120928
  Serious: Yes (Hospitalization, Other)
  Sender: FDA-Public Use
  Company Number: US-ROCHE-784572

PATIENT
  Sex: Male
  Weight: 74.91 kg

DRUGS (2)
  1. ACCUTANE [Suspect]
     Route: 065
     Dates: start: 19840201, end: 19840601
  2. ACCUTANE [Suspect]
     Indication: ACNE
     Route: 065
     Dates: start: 19820901, end: 19830201

REACTIONS (20)
  - WEIGHT DECREASED [None]
  - CROHN'S DISEASE [None]
  - COLONIC POLYP [None]
  - HAEMORRHOIDS [None]
  - CATATONIA [None]
  - STRESS [None]
  - HYPOGONADISM [None]
  - ANAL FISSURE [None]
  - PNEUMONIA [None]
  - DIVERTICULITIS [None]
  - PROCTALGIA [None]
  - PROCTITIS [None]
  - MENTAL STATUS CHANGES [None]
  - MAJOR DEPRESSION [None]
  - FOLLICULITIS [None]
  - DRUG DEPENDENCE [None]
  - INFLAMMATORY BOWEL DISEASE [None]
  - EMOTIONAL DISTRESS [None]
  - ILEUS [None]
  - PNEUMONIA ASPIRATION [None]
